FAERS Safety Report 21926212 (Version 5)
Quarter: 2025Q1

REPORT INFORMATION
  Report Type: Report from Study
  Country: DE (occurrence: DE)
  Receive Date: 20230130
  Receipt Date: 20250320
  Transmission Date: 20250408
  Serious: Yes (Other)
  Sender: MYLAN
  Company Number: DE-ROCHE-2135208

PATIENT
  Age: 46 Year
  Sex: Female
  Weight: 119 kg

DRUGS (88)
  1. METFORMIN [Suspect]
     Active Substance: METFORMIN HYDROCHLORIDE
     Indication: Blood glucose increased
  2. METFORMIN [Suspect]
     Active Substance: METFORMIN HYDROCHLORIDE
     Route: 065
  3. METFORMIN [Suspect]
     Active Substance: METFORMIN HYDROCHLORIDE
     Route: 065
  4. METFORMIN [Suspect]
     Active Substance: METFORMIN HYDROCHLORIDE
  5. COMIRNATY (TOZINAMERAN) [Suspect]
     Active Substance: TOZINAMERAN
     Indication: COVID-19 immunisation
     Dates: start: 20210505, end: 20210505
  6. COMIRNATY (TOZINAMERAN) [Suspect]
     Active Substance: TOZINAMERAN
     Dates: start: 20210505, end: 20210505
  7. COMIRNATY (TOZINAMERAN) [Suspect]
     Active Substance: TOZINAMERAN
     Route: 065
     Dates: start: 20210505, end: 20210505
  8. COMIRNATY (TOZINAMERAN) [Suspect]
     Active Substance: TOZINAMERAN
     Route: 065
     Dates: start: 20210505, end: 20210505
  9. COMIRNATY (TOZINAMERAN) [Suspect]
     Active Substance: TOZINAMERAN
     Dates: start: 20210616, end: 20210616
  10. COMIRNATY (TOZINAMERAN) [Suspect]
     Active Substance: TOZINAMERAN
     Dates: start: 20210616, end: 20210616
  11. COMIRNATY (TOZINAMERAN) [Suspect]
     Active Substance: TOZINAMERAN
     Route: 065
     Dates: start: 20210616, end: 20210616
  12. COMIRNATY (TOZINAMERAN) [Suspect]
     Active Substance: TOZINAMERAN
     Route: 065
     Dates: start: 20210616, end: 20210616
  13. COMIRNATY (TOZINAMERAN) [Suspect]
     Active Substance: TOZINAMERAN
     Dates: start: 20210804, end: 20210804
  14. COMIRNATY (TOZINAMERAN) [Suspect]
     Active Substance: TOZINAMERAN
     Route: 065
     Dates: start: 20210804, end: 20210804
  15. COMIRNATY (TOZINAMERAN) [Suspect]
     Active Substance: TOZINAMERAN
     Dates: start: 20210804, end: 20210804
  16. COMIRNATY (TOZINAMERAN) [Suspect]
     Active Substance: TOZINAMERAN
     Route: 065
     Dates: start: 20210804, end: 20210804
  17. OCREVUS [Suspect]
     Active Substance: OCRELIZUMAB
     Indication: Primary progressive multiple sclerosis
  18. OCREVUS [Suspect]
     Active Substance: OCRELIZUMAB
  19. OCREVUS [Suspect]
     Active Substance: OCRELIZUMAB
     Route: 042
  20. OCREVUS [Suspect]
     Active Substance: OCRELIZUMAB
     Route: 042
  21. OCREVUS [Suspect]
     Active Substance: OCRELIZUMAB
     Route: 042
  22. OCREVUS [Suspect]
     Active Substance: OCRELIZUMAB
     Route: 042
  23. OCREVUS [Suspect]
     Active Substance: OCRELIZUMAB
  24. OCREVUS [Suspect]
     Active Substance: OCRELIZUMAB
  25. OCREVUS [Suspect]
     Active Substance: OCRELIZUMAB
     Route: 042
  26. OCREVUS [Suspect]
     Active Substance: OCRELIZUMAB
     Route: 042
  27. OCREVUS [Suspect]
     Active Substance: OCRELIZUMAB
  28. OCREVUS [Suspect]
     Active Substance: OCRELIZUMAB
  29. OCREVUS [Suspect]
     Active Substance: OCRELIZUMAB
  30. OCREVUS [Suspect]
     Active Substance: OCRELIZUMAB
  31. OCREVUS [Suspect]
     Active Substance: OCRELIZUMAB
     Route: 042
  32. OCREVUS [Suspect]
     Active Substance: OCRELIZUMAB
     Route: 042
  33. TIZANIDINE HYDROCHLORIDE [Concomitant]
     Active Substance: TIZANIDINE HYDROCHLORIDE
  34. TIZANIDINE HYDROCHLORIDE [Concomitant]
     Active Substance: TIZANIDINE HYDROCHLORIDE
     Route: 065
  35. TIZANIDINE HYDROCHLORIDE [Concomitant]
     Active Substance: TIZANIDINE HYDROCHLORIDE
     Route: 065
  36. TIZANIDINE HYDROCHLORIDE [Concomitant]
     Active Substance: TIZANIDINE HYDROCHLORIDE
  37. MAGNESIUM [Concomitant]
     Active Substance: MAGNESIUM
     Dosage: UNK, QD
  38. MAGNESIUM [Concomitant]
     Active Substance: MAGNESIUM
     Dosage: UNK, QD
     Route: 065
  39. MAGNESIUM [Concomitant]
     Active Substance: MAGNESIUM
     Dosage: UNK, QD
     Route: 065
  40. MAGNESIUM [Concomitant]
     Active Substance: MAGNESIUM
     Dosage: UNK, QD
  41. MIRABEGRON [Concomitant]
     Active Substance: MIRABEGRON
     Dosage: 50 MILLIGRAM, QD
     Route: 065
  42. MIRABEGRON [Concomitant]
     Active Substance: MIRABEGRON
     Dosage: 50 MILLIGRAM, QD
  43. MIRABEGRON [Concomitant]
     Active Substance: MIRABEGRON
     Dosage: 50 MILLIGRAM, QD
  44. MIRABEGRON [Concomitant]
     Active Substance: MIRABEGRON
     Dosage: 50 MILLIGRAM, QD
     Route: 065
  45. MIRABEGRON [Concomitant]
     Active Substance: MIRABEGRON
     Route: 065
  46. MIRABEGRON [Concomitant]
     Active Substance: MIRABEGRON
  47. MIRABEGRON [Concomitant]
     Active Substance: MIRABEGRON
  48. MIRABEGRON [Concomitant]
     Active Substance: MIRABEGRON
     Route: 065
  49. CHOLECALCIFEROL [Concomitant]
     Active Substance: CHOLECALCIFEROL
     Dosage: 1000 INTERNATIONAL UNIT, QD
  50. CHOLECALCIFEROL [Concomitant]
     Active Substance: CHOLECALCIFEROL
     Dosage: 1000 INTERNATIONAL UNIT, QD
     Route: 065
  51. CHOLECALCIFEROL [Concomitant]
     Active Substance: CHOLECALCIFEROL
     Dosage: 1000 INTERNATIONAL UNIT, QD
     Route: 065
  52. CHOLECALCIFEROL [Concomitant]
     Active Substance: CHOLECALCIFEROL
     Dosage: 1000 INTERNATIONAL UNIT, QD
  53. PREGABALIN [Concomitant]
     Active Substance: PREGABALIN
     Dosage: 75 MILLIGRAM, Q2W
     Route: 065
  54. PREGABALIN [Concomitant]
     Active Substance: PREGABALIN
     Dosage: 75 MILLIGRAM, Q2W
  55. PREGABALIN [Concomitant]
     Active Substance: PREGABALIN
     Dosage: 75 MILLIGRAM, Q2W
  56. PREGABALIN [Concomitant]
     Active Substance: PREGABALIN
     Dosage: 75 MILLIGRAM, Q2W
     Route: 065
  57. PREGABALIN [Concomitant]
     Active Substance: PREGABALIN
     Dosage: 75 MILLIGRAM, BID (0.5 DAY)
     Route: 065
  58. PREGABALIN [Concomitant]
     Active Substance: PREGABALIN
     Dosage: 75 MILLIGRAM, BID (0.5 DAY)
  59. PREGABALIN [Concomitant]
     Active Substance: PREGABALIN
     Dosage: 75 MILLIGRAM, BID (0.5 DAY)
  60. PREGABALIN [Concomitant]
     Active Substance: PREGABALIN
     Dosage: 75 MILLIGRAM, BID (0.5 DAY)
     Route: 065
  61. DALFAMPRIDINE [Concomitant]
     Active Substance: DALFAMPRIDINE
     Dosage: UNK, Q2W
     Route: 065
  62. DALFAMPRIDINE [Concomitant]
     Active Substance: DALFAMPRIDINE
     Dosage: UNK, Q2W
  63. DALFAMPRIDINE [Concomitant]
     Active Substance: DALFAMPRIDINE
     Dosage: UNK, Q2W
  64. DALFAMPRIDINE [Concomitant]
     Active Substance: DALFAMPRIDINE
     Dosage: UNK, Q2W
     Route: 065
  65. DALFAMPRIDINE [Concomitant]
     Active Substance: DALFAMPRIDINE
     Dosage: UNK, BID
     Route: 065
  66. DALFAMPRIDINE [Concomitant]
     Active Substance: DALFAMPRIDINE
     Dosage: UNK, BID
  67. DALFAMPRIDINE [Concomitant]
     Active Substance: DALFAMPRIDINE
     Dosage: UNK, BID
  68. DALFAMPRIDINE [Concomitant]
     Active Substance: DALFAMPRIDINE
     Dosage: UNK, BID
     Route: 065
  69. BACLOFEN [Concomitant]
     Active Substance: BACLOFEN
     Dosage: UNK, TID (0.33 DAY, (0-1-1-1))
  70. BACLOFEN [Concomitant]
     Active Substance: BACLOFEN
     Dosage: UNK, TID (0.33 DAY, (0-1-1-1))
     Route: 065
  71. BACLOFEN [Concomitant]
     Active Substance: BACLOFEN
     Dosage: UNK, TID (0.33 DAY, (0-1-1-1))
     Route: 065
  72. BACLOFEN [Concomitant]
     Active Substance: BACLOFEN
     Dosage: UNK, TID (0.33 DAY, (0-1-1-1))
  73. METAMIZOLE [Concomitant]
     Active Substance: METAMIZOLE
  74. METAMIZOLE [Concomitant]
     Active Substance: METAMIZOLE
     Route: 065
  75. METAMIZOLE [Concomitant]
     Active Substance: METAMIZOLE
     Route: 065
  76. METAMIZOLE [Concomitant]
     Active Substance: METAMIZOLE
  77. PANTOPRAZOLE [Concomitant]
     Active Substance: PANTOPRAZOLE
     Dosage: UNK, BID (0.5 DAY)
  78. PANTOPRAZOLE [Concomitant]
     Active Substance: PANTOPRAZOLE
     Dosage: UNK, BID (0.5 DAY)
     Route: 065
  79. PANTOPRAZOLE [Concomitant]
     Active Substance: PANTOPRAZOLE
     Dosage: UNK, BID (0.5 DAY)
     Route: 065
  80. PANTOPRAZOLE [Concomitant]
     Active Substance: PANTOPRAZOLE
     Dosage: UNK, BID (0.5 DAY)
  81. AMITRIPTYLINE [Concomitant]
     Active Substance: AMITRIPTYLINE
     Route: 065
  82. AMITRIPTYLINE [Concomitant]
     Active Substance: AMITRIPTYLINE
  83. AMITRIPTYLINE [Concomitant]
     Active Substance: AMITRIPTYLINE
  84. AMITRIPTYLINE [Concomitant]
     Active Substance: AMITRIPTYLINE
     Route: 065
  85. AMITRIPTYLINE [Concomitant]
     Active Substance: AMITRIPTYLINE
     Dosage: 5 MILLIGRAM, BID (0.5 DAY)
     Route: 065
  86. AMITRIPTYLINE [Concomitant]
     Active Substance: AMITRIPTYLINE
     Dosage: 5 MILLIGRAM, BID (0.5 DAY)
  87. AMITRIPTYLINE [Concomitant]
     Active Substance: AMITRIPTYLINE
     Dosage: 5 MILLIGRAM, BID (0.5 DAY)
  88. AMITRIPTYLINE [Concomitant]
     Active Substance: AMITRIPTYLINE
     Dosage: 5 MILLIGRAM, BID (0.5 DAY)
     Route: 065

REACTIONS (34)
  - Urinary tract infection bacterial [Recovered/Resolved]
  - Fatigue [Recovered/Resolved]
  - Oropharyngeal pain [Recovered/Resolved]
  - Neuralgia [Recovered/Resolved]
  - Muscle spasticity [Recovering/Resolving]
  - Osteoarthritis [Recovering/Resolving]
  - Rotator cuff syndrome [Recovering/Resolving]
  - Blood glucose increased [Recovering/Resolving]
  - Apathy [Recovering/Resolving]
  - Chills [Recovered/Resolved]
  - COVID-19 [Recovered/Resolved]
  - Nasopharyngitis [Recovered/Resolved]
  - Back pain [Recovered/Resolved]
  - Dizziness [Recovering/Resolving]
  - Arthralgia [Recovered/Resolved]
  - Hyperhidrosis [Recovered/Resolved]
  - Hypertension [Not Recovered/Not Resolved]
  - Middle insomnia [Not Recovered/Not Resolved]
  - Pain in extremity [Recovered/Resolved]
  - Asthenia [Recovered/Resolved]
  - Ligament rupture [Not Recovered/Not Resolved]
  - Mood swings [Recovering/Resolving]
  - Vision blurred [Recovered/Resolved]
  - Aphonia [Recovered/Resolved]
  - Cough [Recovered/Resolved]
  - Paraesthesia [Not Recovered/Not Resolved]
  - Painful respiration [Recovered/Resolved]
  - Hypokinesia [Not Recovered/Not Resolved]
  - SARS-CoV-2 antibody test negative [Not Recovered/Not Resolved]
  - Headache [Recovered/Resolved]
  - Rash [Not Recovered/Not Resolved]
  - Uhthoff^s phenomenon [Recovered/Resolved]
  - Hypoaesthesia [Not Recovered/Not Resolved]
  - Abdominal pain upper [Recovered/Resolved]

NARRATIVE: CASE EVENT DATE: 20180517
